FAERS Safety Report 7524021-5 (Version None)
Quarter: 2011Q2

REPORT INFORMATION
  Report Type: 
  Country: None (occurrence: None)
  Receive Date: 20110604
  Receipt Date: 20110520
  Transmission Date: 20111010
  Serious: Yes (Hospitalization, Other)
  Sender: FDA-Public Use
  Company Number: GB-WATSON-2011-07446

PATIENT
  Age: 63 Year
  Sex: Female

DRUGS (2)
  1. ATENOLOL [Suspect]
     Indication: ARRHYTHMIA
     Dosage: 50 MG, DAILY
     Route: 048
  2. SUTENT [Suspect]
     Indication: PRODUCT USED FOR UNKNOWN INDICATION
     Dosage: 50 MG, DAILY
     Route: 065
     Dates: start: 20110227, end: 20110302

REACTIONS (3)
  - BRADYCARDIA [None]
  - TACHYCARDIA [None]
  - SUPRAVENTRICULAR TACHYCARDIA [None]
